FAERS Safety Report 4391429-9 (Version None)
Quarter: 2004Q3

REPORT INFORMATION
  Report Type: 
  Country: None (occurrence: None)
  Receive Date: 20040707
  Receipt Date: 20030825
  Transmission Date: 20050211
  Serious: Yes (Other)
  Sender: FDA-Public Use
  Company Number: JP-GLAXOSMITHKLINE-B0308023A

PATIENT
  Age: 84 Year
  Sex: Female

DRUGS (11)
  1. VALTREX [Suspect]
     Indication: HERPES ZOSTER
     Dosage: 1G PER DAY
     Route: 048
     Dates: start: 20030822
  2. PRECIPITATED CALCIUM CARBONATE [Concomitant]
     Dosage: 6UNIT PER DAY
     Route: 048
  3. ISOSORBIDE DINITRATE [Concomitant]
     Dosage: 2UNIT PER DAY
     Route: 048
  4. ETHYL ICOSAPENTATE [Concomitant]
     Dosage: 900MG PER DAY
     Route: 048
  5. AMLODIPINE BESYLATE [Concomitant]
     Dosage: 5MG PER DAY
     Route: 048
  6. NIFEDIPINE [Concomitant]
     Dosage: 40MG PER DAY
     Route: 048
  7. ENALAPRIL MALEATE [Concomitant]
     Dosage: 5MG PER DAY
     Route: 048
  8. CLOSTRIDIUM BUTYRICUM [Concomitant]
     Route: 048
  9. STREPTOCOCCUS FAECALIS [Concomitant]
     Route: 048
  10. HEMODIALYSIS [Concomitant]
  11. BIO THREE [Concomitant]

REACTIONS (2)
  - DEPRESSED LEVEL OF CONSCIOUSNESS [None]
  - GAIT DISTURBANCE [None]
